FAERS Safety Report 25615085 (Version 1)
Quarter: 2025Q3

REPORT INFORMATION
  Report Type: Spontaneous
  Country: US (occurrence: US)
  Receive Date: 20250729
  Receipt Date: 20250729
  Transmission Date: 20251020
  Serious: Yes (Other)
  Sender: ACCORD
  Company Number: US-Accord-496438

PATIENT
  Age: 21 Year
  Sex: Male
  Weight: 113.85 kg

DRUGS (2)
  1. CLOZAPINE [Suspect]
     Active Substance: CLOZAPINE
     Indication: Schizophrenia
     Dosage: TITRATED  TO 650 MG/DAY (TROUGH LEVEL: 381 NG/ML) OVER 4 MONTHS
  2. METFORMIN [Concomitant]
     Active Substance: METFORMIN HYDROCHLORIDE
     Indication: Metabolic disorder
     Dosage: TITRATED TO 1,000 MG TWICE DAILY

REACTIONS (4)
  - Weight increased [Recovered/Resolved]
  - Hyperlipidaemia [Recovering/Resolving]
  - Obstructive sleep apnoea syndrome [Recovered/Resolved]
  - Glycosylated haemoglobin increased [Recovered/Resolved]
